FAERS Safety Report 22695882 (Version 4)
Quarter: 2023Q4

REPORT INFORMATION
  Report Type: Spontaneous
  Country: GB (occurrence: GB)
  Receive Date: 20230712
  Receipt Date: 20231005
  Transmission Date: 20240109
  Serious: Yes (Hospitalization, Other)
  Sender: FDA-Public Use
  Company Number: GB-ASTELLAS-2023US020394

PATIENT
  Age: 90 Year
  Sex: Male

DRUGS (2)
  1. GILTERITINIB [Suspect]
     Active Substance: GILTERITINIB
     Indication: Acute lymphocytic leukaemia recurrent
     Route: 048
     Dates: start: 20210414, end: 20210803
  2. GILTERITINIB [Suspect]
     Active Substance: GILTERITINIB
     Indication: Acute myeloid leukaemia refractory

REACTIONS (2)
  - Cellulitis [Recovered/Resolved]
  - Synovial rupture [Recovered/Resolved]

NARRATIVE: CASE EVENT DATE: 20210604
